FAERS Safety Report 5455131-4 (Version None)
Quarter: 2007Q3

REPORT INFORMATION
  Report Type: 
  Country: None (occurrence: None)
  Receive Date: 20070914
  Receipt Date: 20070905
  Transmission Date: 20080115
  Serious: Yes (Death)
  Sender: FDA-Public Use
  Company Number: 2007001615

PATIENT
  Age: 89 Year
  Sex: Male

DRUGS (1)
  1. TARCEVA [Suspect]
     Dosage: 150 MG (QD), ORAL
     Route: 048
     Dates: end: 20070815

REACTIONS (1)
  - DEATH [None]
